FAERS Safety Report 15353878 (Version 4)
Quarter: 2020Q1

REPORT INFORMATION
  Report Type: Spontaneous
  Country: US (occurrence: US)
  Receive Date: 20180905
  Receipt Date: 20200324
  Transmission Date: 20200409
  Serious: Yes (Hospitalization, Other)
  Sender: FDA-Public Use
  Company Number: US-VIFOR (INTERNATIONAL) INC.-VIT-2018-08664

PATIENT
  Age: 56 Year
  Sex: Female

DRUGS (15)
  1. MIRALAX [Concomitant]
     Active Substance: POLYETHYLENE GLYCOL 3350
  2. RISPERDAL [Concomitant]
     Active Substance: RISPERIDONE
  3. FUROSEMIDE. [Concomitant]
     Active Substance: FUROSEMIDE
  4. HYDROCODONE/ACETAMINOPHEN [Concomitant]
     Active Substance: ACETAMINOPHEN\HYDROCODONE
  5. METOPROLOL TARTRATE. [Concomitant]
     Active Substance: METOPROLOL TARTRATE
  6. VELTASSA [Suspect]
     Active Substance: PATIROMER
     Dosage: 2 PACKETS, UNKNOWN FREQUENCY
     Route: 048
  7. CHOLECALCIFEROL [Concomitant]
     Active Substance: CHOLECALCIFEROL
  8. WELLBUTRIN [Concomitant]
     Active Substance: BUPROPION HYDROCHLORIDE
  9. NEXIUM [Concomitant]
     Active Substance: ESOMEPRAZOLE MAGNESIUM
  10. CALCIUM [Concomitant]
     Active Substance: CALCIUM
  11. VELTASSA [Suspect]
     Active Substance: PATIROMER
     Indication: HYPERKALAEMIA
     Route: 048
     Dates: start: 20160722
  12. VELTASSA [Suspect]
     Active Substance: PATIROMER
     Route: 048
  13. DEPAKOTE [Concomitant]
     Active Substance: DIVALPROEX SODIUM
  14. NEURONTIN [Concomitant]
     Active Substance: GABAPENTIN
  15. XARELTO [Concomitant]
     Active Substance: RIVAROXABAN

REACTIONS (7)
  - Knee operation [Unknown]
  - Cerebrovascular accident [Unknown]
  - Sinusitis [Unknown]
  - Migraine [Unknown]
  - Hospitalisation [Unknown]
  - Off label use [Unknown]
  - Blood potassium increased [Unknown]

NARRATIVE: CASE EVENT DATE: 2020
